FAERS Safety Report 7845347-1 (Version None)
Quarter: 2011Q4

REPORT INFORMATION
  Report Type: 
  Country: None (occurrence: None)
  Receive Date: 20111025
  Receipt Date: 20110830
  Transmission Date: 20120403
  Serious: No
  Sender: FDA-Public Use
  Company Number: US-BAYER-2011-081826

PATIENT

DRUGS (2)
  1. ALEVE (CAPLET) [Suspect]
     Indication: ARTHRALGIA
     Route: 048
  2. ASPIRIN [Suspect]
     Indication: ARTHRALGIA

REACTIONS (3)
  - CONTUSION [None]
  - ATRIAL FIBRILLATION [None]
  - ATRIAL FLUTTER [None]
